FAERS Safety Report 4625700-X (Version None)
Quarter: 2005Q1

REPORT INFORMATION
  Report Type: 
  Country: None (occurrence: None)
  Receive Date: 20050330
  Receipt Date: 20050316
  Transmission Date: 20050727
  Serious: Yes (Hospitalization)
  Sender: FDA-Public Use
  Company Number: FR_050306052

PATIENT
  Age: 69 Year
  Sex: Female

DRUGS (9)
  1. FORTEO [Suspect]
     Indication: OSTEOPOROSIS
     Dosage: 20 UG DAY
     Dates: start: 20050128, end: 20050306
  2. THEOSTAT (THEOPHYLLINE) [Concomitant]
  3. CLARYTINE (LORATADINE) [Concomitant]
  4. TEMGESIC (BUPRENORPHINE HYDROCHLORIDE) [Concomitant]
  5. OXEOL (BAMBUTEROL HYDROCHLORIDE) [Concomitant]
  6. HYDROCORTISONE [Concomitant]
  7. VENTOLIN [Concomitant]
  8. AIROMIR (SALBUTAMOL SULFATE) [Concomitant]
  9. SERETIDE [Concomitant]

REACTIONS (1)
  - ASTHMA [None]
